FAERS Safety Report 4523738-4 (Version None)
Quarter: 2004Q4

REPORT INFORMATION
  Report Type: 
  Country: None (occurrence: None)
  Receive Date: 20041119
  Receipt Date: 20040826
  Transmission Date: 20050328
  Serious: No
  Sender: FDA-Public Use
  Company Number: PHEH2004US09289

PATIENT
  Age: 73 Year
  Sex: Female

DRUGS (1)
  1. ZELNORM [Suspect]
     Indication: ABDOMINAL DISTENSION
     Dosage: 6 MG, BID, ORAL
     Route: 048

REACTIONS (3)
  - DIARRHOEA [None]
  - FATIGUE [None]
  - NAUSEA [None]
